FAERS Safety Report 10152010 (Version 1)
Quarter: 2014Q2

REPORT INFORMATION
  Report Type: Spontaneous
  Country: US (occurrence: US)
  Receive Date: 20140505
  Receipt Date: 20140505
  Transmission Date: 20141212
  Serious: Yes (Other)
  Sender: FDA-Public Use
  Company Number: US-TEVA-416181USA

PATIENT
  Sex: Female

DRUGS (1)
  1. CEFALEXIN [Suspect]

REACTIONS (5)
  - Respiratory distress [Unknown]
  - Hypersensitivity [Unknown]
  - Pruritus [Unknown]
  - Swelling [Unknown]
  - Rash erythematous [Unknown]
